FAERS Safety Report 13165692 (Version 1)
Quarter: 2017Q1

REPORT INFORMATION
  Report Type: Spontaneous
  Country: US (occurrence: US)
  Receive Date: 20170126
  Receipt Date: 20170126
  Transmission Date: 20170509
  Serious: Yes (Hospitalization)
  Sender: FDA-Public Use
  Company Number: None

PATIENT
  Age: 83 Year
  Sex: Male
  Weight: 89.1 kg

DRUGS (4)
  1. BACLOFEN. [Suspect]
     Active Substance: BACLOFEN
     Indication: NECK PAIN
     Route: 048
     Dates: start: 20160823, end: 20160825
  2. PREDNISONE. [Suspect]
     Active Substance: PREDNISONE
     Indication: NECK PAIN
     Dosage: MG EVERY DAY PO
     Route: 048
     Dates: start: 20160823, end: 20160825
  3. BACLOFEN. [Suspect]
     Active Substance: BACLOFEN
     Indication: MUSCLE STRAIN
     Route: 048
     Dates: start: 20160823, end: 20160825
  4. PREDNISONE. [Suspect]
     Active Substance: PREDNISONE
     Indication: MUSCLE STRAIN
     Dosage: MG EVERY DAY PO
     Route: 048
     Dates: start: 20160823, end: 20160825

REACTIONS (2)
  - Confusional state [None]
  - Encephalopathy [None]

NARRATIVE: CASE EVENT DATE: 20160825
